FAERS Safety Report 18893279 (Version 2)
Quarter: 2021Q1

REPORT INFORMATION
  Report Type: Spontaneous
  Country: JP (occurrence: JP)
  Receive Date: 20210215
  Receipt Date: 20210304
  Transmission Date: 20210420
  Serious: Yes (Death, Other)
  Sender: FDA-Public Use
  Company Number: JP-AMGEN-JPNSP2021011309

PATIENT
  Age: 75 Year
  Sex: Female

DRUGS (3)
  1. DABRAFENIB MESILATE [Suspect]
     Active Substance: DABRAFENIB MESYLATE
     Indication: COLON CANCER
     Dosage: UNK
     Route: 065
  2. TRAMETINIB DIMETHYL SULFOXIDE [Suspect]
     Active Substance: TRAMETINIB DIMETHYL SULFOXIDE
     Indication: COLON CANCER
     Dosage: UNK
     Route: 065
  3. VECTIBIX [Suspect]
     Active Substance: PANITUMUMAB
     Indication: COLON CANCER
     Dosage: UNK
     Route: 041

REACTIONS (6)
  - Stomatitis [Recovered/Resolved]
  - Nausea [Recovered/Resolved]
  - Disease progression [Fatal]
  - Colon cancer [Fatal]
  - Decreased appetite [Recovered/Resolved]
  - Off label use [Unknown]
